FAERS Safety Report 6424808-6 (Version None)
Quarter: 2009Q4

REPORT INFORMATION
  Report Type: 
  Country: None (occurrence: None)
  Receive Date: 20091103
  Receipt Date: 20091023
  Transmission Date: 20100525
  Serious: Yes (Other)
  Sender: FDA-Public Use
  Company Number: PHHY2009BR31635

PATIENT
  Sex: Female

DRUGS (3)
  1. DIOVAN [Suspect]
     Dosage: 80 MG, UNK
     Dates: start: 20050101
  2. DIOVAN [Suspect]
     Dosage: 2 TABLETS MORNING AND 2 TABLETS AT NIGHT
  3. PREDNISONE [Concomitant]

REACTIONS (3)
  - BLOOD PRESSURE INCREASED [None]
  - RENAL DISORDER [None]
  - RENAL FAILURE CHRONIC [None]
